FAERS Safety Report 9200918 (Version 1)
Quarter: 2013Q1

REPORT INFORMATION
  Report Type: Spontaneous
  Country: CA (occurrence: None)
  Receive Date: 20130327
  Receipt Date: 20130327
  Transmission Date: 20140127
  Serious: Yes (Other)
  Sender: FDA-Public Use
  Company Number: AUR-APL-2013-02532

PATIENT
  Age: 10 Year
  Sex: Female
  Weight: 11.4 kg

DRUGS (5)
  1. TOPIRAMATE [Suspect]
     Indication: CONVULSION
     Dosage: 25 MG A.M., 12.5 MG PM AND 25 MG NOCTE
  2. VALPROIC ACID [Suspect]
     Indication: CONVULSION
     Dosage: 125 MG A.M., 62.5 MG P.M. AND 125 MG NOCTE
  3. LANSOPRAZOLE (LANSOPRAZOLE) [Concomitant]
  4. CARNITINE (CARNITINE) [Concomitant]
  5. CALCIUM CARBONATE (CALCIUM CARBONATE) [Concomitant]

REACTIONS (20)
  - Femur fracture [None]
  - Blood alkaline phosphatase increased [None]
  - Blood pressure decreased [None]
  - Dysmorphism [None]
  - Body height below normal [None]
  - Carbon dioxide decreased [None]
  - Blood urea decreased [None]
  - Hypophosphataemic rickets [None]
  - Calcium ionised increased [None]
  - Blood 1,25-dihydroxycholecalciferol decreased [None]
  - Metabolic acidosis [None]
  - Osteopenia [None]
  - Nephrocalcinosis [None]
  - Fanconi syndrome [None]
  - Renal tubular acidosis [None]
  - Proteinuria [None]
  - Glycosuria [None]
  - Nephropathy toxic [None]
  - Hypocitraturia [None]
  - No therapeutic response [None]
